FAERS Safety Report 10405540 (Version 2)
Quarter: 2014Q3

REPORT INFORMATION
  Report Type: Report from Study
  Country: US (occurrence: US)
  Receive Date: 20140825
  Receipt Date: 20140908
  Transmission Date: 20150326
  Serious: Yes (Hospitalization, Other)
  Sender: FDA-Public Use
  Company Number: PHEH2014US016546

PATIENT
  Sex: Female

DRUGS (2)
  1. LOTENSIN [Concomitant]
     Active Substance: BENAZEPRIL HYDROCHLORIDE
     Dosage: UKN
  2. TEKTURNA [Suspect]
     Active Substance: ALISKIREN HEMIFUMARATE
     Dosage: 150 MG, TWICE PER DAY
     Dates: start: 2008, end: 20110131

REACTIONS (10)
  - Blood creatinine increased [Unknown]
  - Anaemia [Unknown]
  - Sluggishness [Unknown]
  - Depression [Unknown]
  - Feeling abnormal [Unknown]
  - Cardiac failure congestive [Unknown]
  - Renal failure [Not Recovered/Not Resolved]
  - Mental disorder [Unknown]
  - Lethargy [Unknown]
  - Weight increased [Unknown]
